FAERS Safety Report 23022103 (Version 1)
Quarter: 2023Q4

REPORT INFORMATION
  Report Type: Spontaneous
  Country: JP (occurrence: JP)
  Receive Date: 20231003
  Receipt Date: 20231003
  Transmission Date: 20240109
  Serious: Yes (Hospitalization)
  Sender: FDA-Public Use
  Company Number: JP-DSJP-DSJ-2023-139733

PATIENT
  Age: 72 Year
  Sex: Female
  Weight: 41.6 kg

DRUGS (6)
  1. PRAVASTATIN SODIUM [Suspect]
     Active Substance: PRAVASTATIN SODIUM
     Indication: Dyslipidaemia
     Dosage: 10MG/DAY
     Route: 048
  2. EDOXABAN TOSYLATE [Suspect]
     Active Substance: EDOXABAN TOSYLATE
     Indication: Atrial fibrillation
     Dosage: 30MG/DAY
     Route: 048
  3. AMIODARONE [Suspect]
     Active Substance: AMIODARONE
     Dosage: 200MG/DAY
     Route: 065
  4. BISOPROLOL FUMARATE [Concomitant]
     Active Substance: BISOPROLOL FUMARATE
     Indication: Ventricular tachycardia
     Dosage: 2.5MG/DAY
     Route: 048
  5. BISOPROLOL FUMARATE [Concomitant]
     Active Substance: BISOPROLOL FUMARATE
     Indication: Ventricular fibrillation
     Dosage: 5MG/DAY
     Route: 048
  6. EPERISONE [Concomitant]
     Active Substance: EPERISONE
     Dosage: 150MG/DAY
     Route: 048

REACTIONS (1)
  - Inappropriate antidiuretic hormone secretion [Recovering/Resolving]
